FAERS Safety Report 5938278-5 (Version None)
Quarter: 2008Q4

REPORT INFORMATION
  Report Type: 
  Country: None (occurrence: None)
  Receive Date: 20081031
  Receipt Date: 20081021
  Transmission Date: 20090506
  Serious: Yes (Hospitalization, Other)
  Sender: FDA-Public Use
  Company Number: US-ABBOTT-08P-163-0483132-00

PATIENT
  Sex: Male
  Weight: 96.248 kg

DRUGS (8)
  1. HUMIRA [Suspect]
     Indication: RHEUMATOID ARTHRITIS
     Route: 058
     Dates: start: 20070101
  2. HUMIRA [Suspect]
     Route: 058
     Dates: end: 20080524
  3. HUMIRA [Suspect]
     Route: 058
     Dates: start: 20081014
  4. LEFLUNOMIDE [Concomitant]
     Indication: RHEUMATOID ARTHRITIS
     Route: 048
  5. ASPIRIN [Concomitant]
     Indication: STENT PLACEMENT
     Route: 048
  6. CLOPIDOGREL [Concomitant]
     Indication: STENT PLACEMENT
     Route: 048
  7. METFORMIN HCL [Concomitant]
     Indication: DIABETES MELLITUS
     Route: 048
  8. GLIPIZIDE [Concomitant]
     Indication: DIABETES MELLITUS

REACTIONS (5)
  - ARTHRALGIA [None]
  - GAIT DISTURBANCE [None]
  - SEPSIS [None]
  - SPINAL COLUMN STENOSIS [None]
  - WOUND INFECTION [None]
